FAERS Safety Report 17606729 (Version 1)
Quarter: 2020Q1

REPORT INFORMATION
  Report Type: Report from Study
  Country: BR (occurrence: BR)
  Receive Date: 20200331
  Receipt Date: 20200331
  Transmission Date: 20200409
  Serious: Yes (Hospitalization, Other)
  Sender: FDA-Public Use
  Company Number: NVSC2020BR085675

PATIENT
  Age: 72 Year
  Sex: Male

DRUGS (3)
  1. GLIFAGE [Suspect]
     Active Substance: METFORMIN HYDROCHLORIDE
     Indication: PRODUCT USED FOR UNKNOWN INDICATION
     Dosage: UNK
     Route: 065
  2. ACICLOVIR [Suspect]
     Active Substance: ACYCLOVIR
     Indication: HERPES ZOSTER
     Dosage: UNK
     Route: 065
  3. GALVUS MET [Suspect]
     Active Substance: METFORMIN HYDROCHLORIDE\VILDAGLIPTIN
     Indication: DIABETES MELLITUS
     Dosage: UNK UNK, QD
     Route: 065

REACTIONS (13)
  - Platelet count decreased [Unknown]
  - Neuralgia [Unknown]
  - Weight decreased [Recovering/Resolving]
  - Pain [Unknown]
  - Pyrexia [Recovered/Resolved]
  - Immune system disorder [Unknown]
  - Hyperglycaemia [Unknown]
  - Disease complication [Recovered/Resolved]
  - Herpes zoster [Recovered/Resolved]
  - Nephrolithiasis [Unknown]
  - Drug ineffective [Unknown]
  - Cardiac valve abscess [Recovered/Resolved]
  - Anaemia [Unknown]

NARRATIVE: CASE EVENT DATE: 201811
